FAERS Safety Report 18926625 (Version 1)
Quarter: 2021Q1

REPORT INFORMATION
  Report Type: Spontaneous
  Country: JP (occurrence: JP)
  Receive Date: 20210223
  Receipt Date: 20210223
  Transmission Date: 20210420
  Serious: Yes (Life-Threatening, Hospitalization, Other)
  Sender: FDA-Public Use
  Company Number: JP-TEVA-2021-JP-1882330

PATIENT
  Age: 51 Year
  Sex: Male

DRUGS (9)
  1. FOLINIC ACID [Suspect]
     Active Substance: LEUCOVORIN
     Indication: GASTRIC CANCER
     Dosage: RECEIVED MFOLFOX6 AS FIRST LINE THERAPY
     Route: 065
  2. TS?1 [Suspect]
     Active Substance: GIMERACIL\OTERACIL\TEGAFUR
     Indication: GASTRIC CANCER
     Dosage: AS SECOND LINE THERAPY AND RECEIVED 2 CYCLES AS FIFTH LINE THERAPY
     Route: 065
  3. FLUOROURACIL. [Suspect]
     Active Substance: FLUOROURACIL
     Indication: GASTRIC CANCER
     Dosage: RECEIVED MFOLFOX6 AS FIRST LINE THERAPY
     Route: 065
  4. DOCETAXEL. [Concomitant]
     Active Substance: DOCETAXEL
     Indication: GASTRIC CANCER
     Dosage: RECEIVED 2 CYCLES AS FIFTH LINE THERAPY
     Route: 065
  5. CDDP [Suspect]
     Active Substance: CISPLATIN
     Indication: GASTRIC CANCER
     Dosage: RECEIVED AS SECOND LINE THERAPY
     Route: 065
  6. NAB?PACLITAXEL [Suspect]
     Active Substance: PACLITAXEL
     Indication: GASTRIC CANCER
     Dosage: RECEIVED AS THIRD LINE THERAPY
     Route: 065
  7. RAMUCIRUMAB [Suspect]
     Active Substance: RAMUCIRUMAB
     Indication: GASTRIC CANCER
     Dosage: RECEIVED AS THIRD LINE THERAPY
     Route: 065
  8. OXALIPLATIN. [Suspect]
     Active Substance: OXALIPLATIN
     Indication: GASTRIC CANCER
     Dosage: RECEIVED MFOLFOX6 AS FIRST LINE THERAPY
     Route: 065
  9. NIVOLUMAB [Suspect]
     Active Substance: NIVOLUMAB
     Indication: GASTRIC CANCER
     Dosage: RECEIVED 4 CYCLES AS FOURTH LINE THERAPY
     Route: 065

REACTIONS (6)
  - Lip erosion [Not Recovered/Not Resolved]
  - Drug ineffective [Unknown]
  - Stevens-Johnson syndrome [Not Recovered/Not Resolved]
  - Gait disturbance [Not Recovered/Not Resolved]
  - Skin erosion [Not Recovered/Not Resolved]
  - Penile erosion [Not Recovered/Not Resolved]
